FAERS Safety Report 24803833 (Version 1)
Quarter: 2025Q1

REPORT INFORMATION
  Report Type: Spontaneous
  Country: KE (occurrence: PK)
  Receive Date: 20250103
  Receipt Date: 20250103
  Transmission Date: 20250408
  Serious: Yes (Hospitalization)
  Sender: RANBAXY
  Company Number: KE-SUN PHARMACEUTICAL INDUSTRIES LTD-2024RR-486524

PATIENT
  Sex: Male

DRUGS (6)
  1. CLARITHROMYCIN [Suspect]
     Active Substance: CLARITHROMYCIN
     Indication: Amniotic cavity infection
     Route: 065
  2. CEFTRIAXONE [Suspect]
     Active Substance: CEFTRIAXONE
     Indication: Amniotic cavity infection
     Route: 065
  3. ACETAMINOPHEN [Suspect]
     Active Substance: ACETAMINOPHEN
     Indication: Amniotic cavity infection
     Route: 065
  4. METRONIDAZOLE [Concomitant]
     Active Substance: METRONIDAZOLE
     Indication: Amniotic cavity infection
     Route: 065
  5. BETAMETHASONE [Concomitant]
     Active Substance: BETAMETHASONE
     Indication: Amniotic cavity infection
     Route: 065
  6. MAGNESIUM SULFATE [Concomitant]
     Active Substance: MAGNESIUM SULFATE
     Indication: Amniotic cavity infection
     Route: 065

REACTIONS (2)
  - Low birth weight baby [Unknown]
  - Foetal exposure during pregnancy [Unknown]
